FAERS Safety Report 23764322 (Version 1)
Quarter: 2024Q2

REPORT INFORMATION
  Report Type: Spontaneous
  Country: US (occurrence: US)
  Receive Date: 20240420
  Receipt Date: 20240420
  Transmission Date: 20240716
  Serious: No
  Sender: FDA-Public Use
  Company Number: US-HALEON-2166839

PATIENT
  Age: 26 Year
  Sex: Female

DRUGS (1)
  1. ADVIL [Suspect]
     Active Substance: IBUPROFEN
     Indication: Abdominal pain upper
     Dosage: TIME INTERVAL: TOTAL
     Dates: start: 20240401

REACTIONS (3)
  - Drug ineffective [Unknown]
  - Product use issue [Unknown]
  - Abdominal discomfort [Unknown]
